FAERS Safety Report 24906003 (Version 3)
Quarter: 2025Q2

REPORT INFORMATION
  Report Type: Spontaneous
  Country: JP (occurrence: JP)
  Receive Date: 20250130
  Receipt Date: 20250515
  Transmission Date: 20250716
  Serious: Yes (Death, Life-Threatening, Hospitalization, Other)
  Sender: ASTELLAS
  Company Number: JP-ASTELLAS-2024-AER-024459

PATIENT
  Age: 75 Year
  Sex: Male
  Weight: 47 kg

DRUGS (12)
  1. VYLOY [Suspect]
     Active Substance: ZOLBETUXIMAB-CLZB
     Indication: Oesophageal carcinoma
     Route: 042
     Dates: start: 20240925, end: 20241127
  2. OXALIPLATIN [Suspect]
     Active Substance: OXALIPLATIN
     Indication: Oesophageal carcinoma
     Route: 065
     Dates: start: 20240731, end: 20241127
  3. XELODA [Suspect]
     Active Substance: CAPECITABINE
     Indication: Oesophageal carcinoma
     Route: 065
     Dates: start: 20240925, end: 20241127
  4. TS-1 [Concomitant]
     Active Substance: GIMERACIL\OTERACIL POTASSIUM\TEGAFUR
     Indication: Oesophageal carcinoma
     Route: 065
     Dates: start: 20240731, end: 20240826
  5. PIPERACILLIN SODIUM\TAZOBACTAM SODIUM [Concomitant]
     Active Substance: PIPERACILLIN SODIUM\TAZOBACTAM SODIUM
     Indication: Pneumonia aspiration
     Route: 065
     Dates: start: 20241202
  6. SOLU-MEDROL [Concomitant]
     Active Substance: METHYLPREDNISOLONE SODIUM SUCCINATE
     Indication: Pneumonia aspiration
     Route: 065
     Dates: start: 20241205, end: 20241207
  7. PREDNISOLONE [Concomitant]
     Active Substance: PREDNISOLONE
     Indication: Pneumonia aspiration
     Route: 042
     Dates: start: 20241205
  8. SIVELESTAT SODIUM [Concomitant]
     Active Substance: SIVELESTAT SODIUM
     Indication: Pneumonia aspiration
     Route: 042
     Dates: start: 20241205
  9. THROMBOMODULIN ALFA [Concomitant]
     Active Substance: THROMBOMODULIN ALFA
     Indication: Disseminated intravascular coagulation
     Route: 042
     Dates: start: 20241205, end: 20241210
  10. ALBUMIN HUMAN [Concomitant]
     Active Substance: ALBUMIN HUMAN
     Indication: Hypoalbuminaemia
     Route: 065
     Dates: start: 20241205
  11. IMIPENEM AND CILASTATIN [Concomitant]
     Active Substance: CILASTATIN SODIUM\IMIPENEM
     Indication: Pneumonia aspiration
     Route: 065
     Dates: start: 20241219
  12. VIMPAT [Concomitant]
     Active Substance: LACOSAMIDE
     Indication: Seizure
     Route: 042
     Dates: start: 20241224

REACTIONS (4)
  - Pneumonia aspiration [Fatal]
  - Hypoalbuminaemia [Not Recovered/Not Resolved]
  - Seizure [Recovered/Resolved]
  - Pancytopenia [Not Recovered/Not Resolved]

NARRATIVE: CASE EVENT DATE: 20241016
